FAERS Safety Report 12505252 (Version 2)
Quarter: 2016Q3

REPORT INFORMATION
  Report Type: Spontaneous
  Country: FR (occurrence: FR)
  Receive Date: 20160628
  Receipt Date: 20160812
  Transmission Date: 20161109
  Serious: Yes (Other)
  Sender: FDA-Public Use
  Company Number: FR-PFIZER INC-2016317022

PATIENT
  Age: 54 Year
  Sex: Female

DRUGS (5)
  1. LAMICTAL [Suspect]
     Active Substance: LAMOTRIGINE
     Dosage: 100 MG, 2X/DAY
     Route: 048
     Dates: start: 20140317
  2. EFFEXOR LP [Suspect]
     Active Substance: VENLAFAXINE HYDROCHLORIDE
     Indication: DEPRESSION
     Dosage: 3 DF, (2 IN THE MORNING, 1 AT MIDDAY)
     Route: 048
     Dates: start: 20110224
  3. LYSANXIA [Suspect]
     Active Substance: PRAZEPAM
     Dosage: 10 MG, 2X/DAY
     Route: 048
     Dates: start: 20110221
  4. THERALENE LP [Suspect]
     Active Substance: TRIMEPRAZINE
     Indication: AFFECTIVE DISORDER
     Dosage: 400 MG 2 DOSAGE FORM ONCE DAILY
     Route: 048
     Dates: start: 20150914
  5. IBUPROFEN. [Interacting]
     Active Substance: IBUPROFEN
     Dosage: UNK, AS NEEDED
     Route: 048
     Dates: start: 201603

REACTIONS (2)
  - Dry mouth [Not Recovered/Not Resolved]
  - Drug interaction [Not Recovered/Not Resolved]

NARRATIVE: CASE EVENT DATE: 201603
